FAERS Safety Report 9364863 (Version 4)
Quarter: 2015Q1

REPORT INFORMATION
  Report Type: Spontaneous
  Country: US (occurrence: US)
  Receive Date: 20130624
  Receipt Date: 20150310
  Transmission Date: 20150721
  Serious: Yes (Hospitalization, Other)
  Sender: FDA-Public Use
  Company Number: US-GLAXOSMITHKLINE-A1027855A

PATIENT
  Sex: Female

DRUGS (7)
  1. WARFARIN [Concomitant]
     Active Substance: WARFARIN
  2. FLOLAN [Suspect]
     Active Substance: EPOPROSTENOL SODIUM
     Dosage: UNK
  3. FLOLAN [Suspect]
     Active Substance: EPOPROSTENOL SODIUM
     Indication: PULMONARY HYPERTENSION
     Dosage: DOSE: 29.07 NG/KG/MINCONCENTRATION: 45000 NG/MLVIAL STRENGTH: 1.5 MG
     Route: 042
     Dates: start: 20010515
  4. REVATIO [Concomitant]
     Active Substance: SILDENAFIL CITRATE
  5. FLOLAN [Suspect]
     Active Substance: EPOPROSTENOL SODIUM
     Dosage: UNK
     Dates: start: 20010515
  6. FLOLAN [Suspect]
     Active Substance: EPOPROSTENOL SODIUM
     Dosage: 29 NG/KG/MIN, 45,000 NG/ML, 80 ML/DAY, 1.5 MG
  7. FLOLAN [Suspect]
     Active Substance: EPOPROSTENOL SODIUM
     Dosage: 29 NG/KG/MIN CO

REACTIONS (5)
  - Hospitalisation [Unknown]
  - Dermatitis contact [Unknown]
  - Peripheral swelling [Unknown]
  - Fungal infection [Unknown]
  - Pneumonia [Unknown]
